FAERS Safety Report 8882445 (Version 3)
Quarter: 2013Q3

REPORT INFORMATION
  Report Type: Report from Study
  Country: CA (occurrence: CA)
  Receive Date: 20121105
  Receipt Date: 20130828
  Transmission Date: 20140515
  Serious: Yes (Other)
  Sender: FDA-Public Use
  Company Number: CA-JNJFOC-20121015270

PATIENT
  Sex: Male
  Weight: 54 kg

DRUGS (5)
  1. REMICADE [Suspect]
     Indication: CROHN^S DISEASE
     Dosage: WEEK 0, 2 6 AND ONCE IN EVERY 8 WEEKS
     Route: 042
     Dates: start: 20120822
  2. CALCIUM [Concomitant]
     Route: 065
  3. MAGNESIUM [Concomitant]
     Route: 065
  4. VITAMIN B 12 [Concomitant]
     Route: 065
  5. IMURAN [Concomitant]
     Route: 065

REACTIONS (1)
  - No adverse event [Unknown]
